FAERS Safety Report 9651490 (Version 2)
Quarter: 2013Q4

REPORT INFORMATION
  Report Type: Report from Study
  Country: TW (occurrence: TW)
  Receive Date: 20131029
  Receipt Date: 20131112
  Transmission Date: 20140711
  Serious: Yes (Other)
  Sender: FDA-Public Use
  Company Number: TW-ROCHE-1296101

PATIENT
  Age: 60 Year
  Sex: Male

DRUGS (3)
  1. OMALIZUMAB [Suspect]
     Indication: PRODUCT USED FOR UNKNOWN INDICATION
     Route: 058
     Dates: start: 20130330, end: 20130720
  2. ACETAMINOPHEN [Concomitant]
     Route: 065
     Dates: start: 20130711, end: 20130713
  3. BROWN MIXTURE (TAIWAN, PROVINCE OF CHINA) [Concomitant]
     Route: 065
     Dates: start: 20130711, end: 20130713

REACTIONS (1)
  - Asthma [Recovering/Resolving]
